FAERS Safety Report 4448420-3 (Version None)
Quarter: 2004Q3

REPORT INFORMATION
  Report Type: 
  Country: None (occurrence: None)
  Receive Date: 20040729
  Receipt Date: 20031003
  Transmission Date: 20050211
  Serious: Yes (Hospitalization)
  Sender: FDA-Public Use
  Company Number: NSADSS2003024724

PATIENT
  Age: 23 Year
  Sex: Male

DRUGS (9)
  1. RISPERDAL [Suspect]
     Indication: PSYCHOTIC DISORDER
     Dosage: SEE IMAGE
     Route: 048
     Dates: start: 19990101
  2. RISPERDAL [Suspect]
     Indication: PSYCHOTIC DISORDER
     Dosage: SEE IMAGE
     Route: 048
     Dates: start: 20000410
  3. RISPERDAL [Suspect]
     Indication: PSYCHOTIC DISORDER
     Dosage: SEE IMAGE
     Route: 048
     Dates: start: 20001012
  4. HALDOL [Suspect]
     Indication: PSYCHOTIC DISORDER
  5. DETROL [Concomitant]
  6. DITROPAN [Concomitant]
  7. COGENTIN [Concomitant]
  8. INDERAL [Concomitant]
  9. ZYPREXA [Concomitant]

REACTIONS (12)
  - AKATHISIA [None]
  - ARTHRALGIA [None]
  - CHEST PAIN [None]
  - DYSKINESIA [None]
  - DYSPNOEA [None]
  - HAEMORRHOIDS [None]
  - INSOMNIA [None]
  - NASOPHARYNGITIS [None]
  - PSYCHOTIC DISORDER [None]
  - SWOLLEN TONGUE [None]
  - UPPER RESPIRATORY TRACT INFECTION [None]
  - URINARY INCONTINENCE [None]
